FAERS Safety Report 8919629 (Version 3)
Quarter: 2013Q1

REPORT INFORMATION
  Report Type: Spontaneous
  Country: US (occurrence: US)
  Receive Date: 20121121
  Receipt Date: 20130227
  Transmission Date: 20140127
  Serious: No
  Sender: FDA-Public Use
  Company Number: US-BIOGENIDEC-2012BI053308

PATIENT
  Age: 26 Year
  Sex: Male

DRUGS (1)
  1. TYSABRI [Suspect]
     Indication: MULTIPLE SCLEROSIS
     Route: 042
     Dates: start: 20110415, end: 20120825

REACTIONS (5)
  - Gastrointestinal disorder [Unknown]
  - Mobility decreased [Not Recovered/Not Resolved]
  - General symptom [Not Recovered/Not Resolved]
  - Fatigue [Not Recovered/Not Resolved]
  - Gastrointestinal infection [Not Recovered/Not Resolved]
